FAERS Safety Report 4931257-6 (Version None)
Quarter: 2006Q1

REPORT INFORMATION
  Report Type: 
  Country: None (occurrence: None)
  Receive Date: 20060302
  Receipt Date: 20060130
  Transmission Date: 20060701
  Serious: Yes (Hospitalization)
  Sender: FDA-Public Use
  Company Number: FR-MERCK-0601FRA00109

PATIENT
  Age: 9 Year
  Sex: Male

DRUGS (6)
  1. SINGULAIR [Suspect]
     Indication: ASTHMA
     Route: 048
     Dates: start: 20050101, end: 20050201
  2. PREDNISOLONE SODIUM METASULFOBENZOATE [Concomitant]
     Indication: ASTHMA
     Route: 048
     Dates: start: 20050121
  3. ALBUTEROL SULFATE [Concomitant]
     Indication: ASTHMA
     Route: 055
  4. FORMOTEROL FUMARATE [Concomitant]
     Indication: ASTHMA
     Route: 055
  5. FLUTICASONE PROPIONATE AND SALMETEROL XINAFOATE [Concomitant]
     Indication: ASTHMA
     Route: 055
  6. SINGULAIR [Suspect]
     Route: 048
     Dates: start: 20040907, end: 20050101

REACTIONS (3)
  - CEREBELLAR TUMOUR [None]
  - EOSINOPHIL PERCENTAGE ABNORMAL [None]
  - PRESCRIBED OVERDOSE [None]
